FAERS Safety Report 25137652 (Version 1)
Quarter: 2025Q1

REPORT INFORMATION
  Report Type: Spontaneous
  Country: FR (occurrence: FR)
  Receive Date: 20250329
  Receipt Date: 20250329
  Transmission Date: 20250409
  Serious: Yes (Life-Threatening, Hospitalization)
  Sender: TEVA
  Company Number: None

PATIENT
  Age: 78 Year
  Sex: Male
  Weight: 86 kg

DRUGS (2)
  1. AMIODARONE [Interacting]
     Active Substance: AMIODARONE
     Indication: Atrial fibrillation
     Route: 048
     Dates: start: 20201026, end: 20250223
  2. BISOPROLOL [Interacting]
     Active Substance: BISOPROLOL
     Indication: Atrial fibrillation
     Dosage: FILM-COATED, SCORED TABLET
     Route: 048
     Dates: start: 20201023, end: 20250223

REACTIONS (2)
  - Cardiac failure acute [Recovered/Resolved]
  - Sinus bradycardia [Recovered/Resolved]

NARRATIVE: CASE EVENT DATE: 20250223
